FAERS Safety Report 7280600-4 (Version None)
Quarter: 2011Q1

REPORT INFORMATION
  Report Type: 
  Country: None (occurrence: None)
  Receive Date: 20110208
  Receipt Date: 20110203
  Transmission Date: 20110831
  Serious: Yes (Other)
  Sender: FDA-Public Use
  Company Number: B0697806A

PATIENT

DRUGS (1)
  1. ALLI [Suspect]
     Route: 065

REACTIONS (2)
  - EPISTAXIS [None]
  - COAGULOPATHY [None]
